FAERS Safety Report 12756517 (Version 1)
Quarter: 2016Q3

REPORT INFORMATION
  Report Type: Spontaneous
  Country: US (occurrence: US)
  Receive Date: 20160917
  Receipt Date: 20160917
  Transmission Date: 20161109
  Serious: No
  Sender: FDA-Public Use
  Company Number: US-009507513-1609USA004335

PATIENT
  Age: 64 Year

DRUGS (1)
  1. JANUMET [Suspect]
     Active Substance: METFORMIN HYDROCHLORIDE\SITAGLIPTIN PHOSPHATE
     Indication: DIABETES MELLITUS
     Dosage: 50/500 MG (UNSPECIFIED IF TAKEN ONCE OR TWICE DAILY)
     Route: 048
     Dates: start: 2009, end: 2012

REACTIONS (1)
  - Pancreatic cyst [Unknown]
